FAERS Safety Report 13664405 (Version 1)
Quarter: 2017Q2

REPORT INFORMATION
  Report Type: Report from Study
  Country: DE (occurrence: DE)
  Receive Date: 20170619
  Receipt Date: 20170619
  Transmission Date: 20170830
  Serious: Yes (Hospitalization)
  Sender: FDA-Public Use
  Company Number: DE-ASTELLAS-2017US023776

PATIENT
  Age: 65 Year
  Sex: Male

DRUGS (4)
  1. INSULIN [Concomitant]
     Active Substance: INSULIN NOS
     Indication: DIABETES MELLITUS
     Dosage: UNK IU, AS NEEDED
     Route: 042
     Dates: start: 20170302, end: 20170308
  2. PROTAPHANE [Concomitant]
     Active Substance: INSULIN HUMAN
     Indication: DIABETES MELLITUS
     Route: 042
     Dates: start: 20170408
  3. TACROLIMUS. [Suspect]
     Active Substance: TACROLIMUS
     Indication: RENAL TRANSPLANT
     Route: 048
     Dates: start: 20170303
  4. ACTRAPID [Concomitant]
     Active Substance: INSULIN HUMAN
     Indication: DIABETES MELLITUS
     Dosage: UNK IU, AS NEEDED
     Route: 058
     Dates: start: 20170308

REACTIONS (2)
  - Wound dehiscence [Recovered/Resolved with Sequelae]
  - Urinary anastomotic leak [Recovered/Resolved with Sequelae]

NARRATIVE: CASE EVENT DATE: 20170408
